FAERS Safety Report 7921713 (Version 4)
Quarter: 2015Q2

REPORT INFORMATION
  Report Type: Spontaneous
  Country: US (occurrence: US)
  Receive Date: 20110429
  Receipt Date: 20150529
  Transmission Date: 20150821
  Serious: No
  Sender: FDA-Public Use
  Company Number: US-ASTRAZENECA-2010SE50226

PATIENT
  Age: 60 Year
  Sex: Female

DRUGS (2)
  1. NEXIUM [Suspect]
     Active Substance: ESOMEPRAZOLE MAGNESIUM
     Indication: ACIDOSIS
     Route: 048
  2. TOPROL XL [Suspect]
     Active Substance: METOPROLOL SUCCINATE
     Route: 048

REACTIONS (13)
  - Pain [Unknown]
  - Dyspepsia [Unknown]
  - Chest pain [Unknown]
  - Chest discomfort [Unknown]
  - Drug dose omission [Unknown]
  - Insomnia [Unknown]
  - Drug ineffective [Unknown]
  - Drug dispensing error [Unknown]
  - Abdominal discomfort [Unknown]
  - Abdominal pain upper [Unknown]
  - Intentional product misuse [Unknown]
  - Stress [Unknown]
  - Malaise [Unknown]
